FAERS Safety Report 8179339-2 (Version None)
Quarter: 2012Q1

REPORT INFORMATION
  Report Type: 
  Country: None (occurrence: None)
  Receive Date: 20120302
  Receipt Date: 20120223
  Transmission Date: 20120608
  Serious: Yes (Other)
  Sender: FDA-Public Use
  Company Number: US-ABBOTT-12P-163-0908775-00

PATIENT
  Sex: Female
  Weight: 77.18 kg

DRUGS (24)
  1. POTASSIUM CHLORIDE [Concomitant]
     Indication: BLOOD POTASSIUM DECREASED
  2. MIMVEY [Concomitant]
     Indication: HORMONE REPLACEMENT THERAPY
  3. TRAMADOL HCL [Suspect]
     Indication: PAIN
  4. HYDROCHLOROTHIAZIDE [Concomitant]
     Indication: DIURETIC THERAPY
  5. POTASSIUM CHLORIDE [Concomitant]
     Indication: MUSCLE DISORDER
  6. VITAMIN E [Concomitant]
     Indication: DETOXIFICATION
  7. LIDODERM [Concomitant]
     Indication: PAIN
     Dosage: PATCHES
  8. HUMIRA [Suspect]
     Dates: start: 20111101
  9. POTASSIUM CHLORIDE [Concomitant]
     Indication: MUSCLE SPASMS
  10. EVENING PRIMROSE OIL [Concomitant]
     Indication: CONSTIPATION
  11. COD LIVER OIL [Concomitant]
     Indication: VITAMIN D DECREASED
  12. CALCIUM CITRATE PLUS D [Concomitant]
     Indication: MINERAL SUPPLEMENTATION
  13. XOPENEX [Concomitant]
     Indication: ASTHMA
  14. CELEBREX [Concomitant]
     Indication: FIBROMYALGIA
  15. XANAX [Concomitant]
     Indication: ANXIETY
  16. SUPER COMPLEX B [Concomitant]
     Indication: DETOXIFICATION
  17. CELEBREX [Concomitant]
     Indication: SPINAL OSTEOARTHRITIS
  18. HYDROCHLOROTHIAZIDE [Concomitant]
     Indication: ABDOMINAL DISTENSION
  19. BUDESONIDE [Concomitant]
     Indication: ASTHMA
     Dosage: VIA NEBULIZER
  20. VOLTAREN [Concomitant]
     Indication: PAIN
     Dosage: GEL
  21. HUMIRA [Suspect]
     Indication: PSORIATIC ARTHROPATHY
     Dates: start: 20111001, end: 20111101
  22. GLUCOSAMINE [Concomitant]
     Indication: ARTHROPATHY
  23. EXCEDRIN (MIGRAINE) [Concomitant]
     Indication: ANALGESIC THERAPY
  24. LYRICA [Suspect]
     Indication: FIBROMYALGIA

REACTIONS (13)
  - TEMPORAL LOBE EPILEPSY [None]
  - MALAISE [None]
  - INJECTION SITE URTICARIA [None]
  - GAIT DISTURBANCE [None]
  - DRUG EFFECT DECREASED [None]
  - COUGH [None]
  - ANAEMIA [None]
  - SIMPLE PARTIAL SEIZURES [None]
  - TIC [None]
  - BACK PAIN [None]
  - HYPERTENSION [None]
  - PAIN IN EXTREMITY [None]
  - STOMATITIS [None]
